FAERS Safety Report 24404993 (Version 1)
Quarter: 2024Q4

REPORT INFORMATION
  Report Type: Spontaneous
  Country: JP (occurrence: JP)
  Receive Date: 20241007
  Receipt Date: 20241007
  Transmission Date: 20250114
  Serious: Yes (Hospitalization, Other)
  Sender: PFIZER
  Company Number: JP-PFIZER INC-PV202400127673

PATIENT
  Age: 62 Year
  Sex: Female

DRUGS (1)
  1. METHOTREXATE SODIUM [Suspect]
     Active Substance: METHOTREXATE SODIUM
     Indication: Psoriatic arthropathy
     Dosage: UNK

REACTIONS (4)
  - Encephalopathy [Recovering/Resolving]
  - Epstein-Barr virus infection reactivation [Recovering/Resolving]
  - Central nervous system lesion [Recovering/Resolving]
  - Off label use [Unknown]
